FAERS Safety Report 17900510 (Version 1)
Quarter: 2020Q2

REPORT INFORMATION
  Report Type: Spontaneous
  Country: ZW (occurrence: ZW)
  Receive Date: 20200616
  Receipt Date: 20200616
  Transmission Date: 20200714
  Serious: Yes (Death)
  Sender: FDA-Public Use
  Company Number: NVSC2020ZW166684

PATIENT
  Sex: Female

DRUGS (1)
  1. GLIVEC [Suspect]
     Active Substance: IMATINIB MESYLATE
     Indication: DERMATOFIBROSARCOMA PROTUBERANS
     Dosage: 800 MG (8 X 100MG TABLETS)
     Route: 065

REACTIONS (1)
  - Death [Fatal]
